FAERS Safety Report 8426240-2 (Version None)
Quarter: 2012Q2

REPORT INFORMATION
  Report Type: 
  Country: None (occurrence: None)
  Receive Date: 20120611
  Receipt Date: 20120601
  Transmission Date: 20120825
  Serious: Yes (Hospitalization)
  Sender: FDA-Public Use
  Company Number: FR-SANOFI-AVENTIS-2012SA039070

PATIENT
  Age: 87 Year
  Sex: Female

DRUGS (10)
  1. ZOLPIDEM [Suspect]
     Indication: INSOMNIA
     Route: 048
     Dates: start: 20110101
  2. ZOLOFT [Suspect]
     Route: 048
  3. MIANSERINE [Suspect]
     Indication: DEPRESSION
     Route: 048
     Dates: start: 20030101
  4. COZAAR [Suspect]
     Route: 048
     Dates: start: 20110101
  5. PRAZEPAM [Suspect]
     Indication: ANXIETY
     Route: 048
     Dates: start: 20010101
  6. FENOFIBRATE [Concomitant]
     Dosage: STRENGTH: 67 MCG
  7. PANTOPRAZOLE [Concomitant]
     Dosage: STRENGTH: 40 MG
     Route: 048
  8. ASPIRIN [Concomitant]
     Dosage: STRENGTH: 75 MG
     Route: 048
  9. ZOLOFT [Suspect]
     Indication: DEPRESSION
     Route: 048
     Dates: start: 20030101
  10. ZOLPIDEM [Suspect]
     Route: 048

REACTIONS (3)
  - LOSS OF CONSCIOUSNESS [None]
  - FALL [None]
  - COGNITIVE DISORDER [None]
